FAERS Safety Report 19057924 (Version 1)
Quarter: 2021Q1

REPORT INFORMATION
  Report Type: Spontaneous
  Country: US (occurrence: US)
  Receive Date: 20210324
  Receipt Date: 20210324
  Transmission Date: 20210420
  Serious: No
  Sender: FDA-Public Use
  Company Number: US-TEVA-2021-US-1893178

PATIENT
  Sex: Female

DRUGS (1)
  1. FAMOTIDINE. [Suspect]
     Active Substance: FAMOTIDINE
     Route: 065

REACTIONS (3)
  - Wrong technique in product usage process [Unknown]
  - Drug intolerance [Unknown]
  - Incorrect dose administered [Unknown]
